FAERS Safety Report 23357245 (Version 1)
Quarter: 2023Q4

REPORT INFORMATION
  Report Type: Spontaneous
  Country: US (occurrence: None)
  Receive Date: 20231230
  Receipt Date: 20231230
  Transmission Date: 20240110
  Serious: Yes (Disabling)
  Sender: FDA-Public Use
  Company Number: None

PATIENT
  Age: 70 Year
  Sex: Male
  Weight: 107.55 kg

DRUGS (12)
  1. UBRELVY [Suspect]
     Active Substance: UBROGEPANT
     Indication: Migraine
     Dosage: OTHER QUANTITY : 1 TABLET(S);?FREQUENCY : AS NEEDED;?
     Route: 048
     Dates: start: 20231229, end: 20231229
  2. Losartan 50mg 1Xday [Concomitant]
  3. Levothyroxine 100mg 1Xday [Concomitant]
  4. Metoprolol 25mg 1/2 twice a day [Concomitant]
  5. Flecanide 50mg 1Xday [Concomitant]
  6. VITAMIN C [Concomitant]
     Active Substance: ASCORBIC ACID
  7. ZINC [Concomitant]
     Active Substance: PYRITHIONE ZINC\ZINC\ZINC CHLORIDE
  8. VITAMIN D3 [Concomitant]
     Active Substance: CHOLECALCIFEROL
  9. MAGNESIUM [Concomitant]
     Active Substance: MAGNESIUM
  10. COENZYME Q10 [Concomitant]
     Active Substance: DIETARY SUPPLEMENT\UBIDECARENONE
  11. all 1Xday Curcumin and/or Quercetin as needed [Concomitant]
  12. Glucevia 2Xday Elderberry as needed [Concomitant]

REACTIONS (2)
  - Feeling abnormal [None]
  - Hypertension [None]

NARRATIVE: CASE EVENT DATE: 20231229
